FAERS Safety Report 5404026-0 (Version None)
Quarter: 2007Q3

REPORT INFORMATION
  Report Type: 
  Country: None (occurrence: None)
  Receive Date: 20070730
  Receipt Date: 20070622
  Transmission Date: 20080115
  Serious: Yes (Other)
  Sender: FDA-Public Use
  Company Number: 6035397

PATIENT
  Age: 14 Year
  Sex: Male

DRUGS (2)
  1. CLARITHROMYCIN [Suspect]
     Indication: ATYPICAL MYCOBACTERIAL INFECTION
     Dosage: 250; ORAL
     Route: 048
     Dates: start: 20070512
  2. CIPROFLOXACIN [Suspect]
     Indication: ATYPICAL MYCOBACTERIAL INFECTION
     Dosage: ORAL
     Route: 048
     Dates: start: 20070512

REACTIONS (1)
  - ARTHRALGIA [None]
